FAERS Safety Report 19953702 (Version 2)
Quarter: 2021Q4

REPORT INFORMATION
  Report Type: Spontaneous
  Country: US (occurrence: US)
  Receive Date: 20211014
  Receipt Date: 20211112
  Transmission Date: 20220303
  Serious: Yes (Other)
  Sender: FDA-Public Use
  Company Number: US-BAUSCH-BL-2021-034035

PATIENT
  Sex: Female

DRUGS (2)
  1. PROLENSA [Suspect]
     Active Substance: BROMFENAC SODIUM
     Indication: Postoperative care
     Route: 047
     Dates: start: 202109
  2. PROLENSA [Suspect]
     Active Substance: BROMFENAC SODIUM
     Dosage: EVENING
     Route: 047
     Dates: start: 20211001

REACTIONS (7)
  - Retinal tear [Not Recovered/Not Resolved]
  - Visual impairment [Unknown]
  - Photopsia [Unknown]
  - Mydriasis [Unknown]
  - Vitreous disorder [Unknown]
  - Photophobia [Unknown]
  - Intentional dose omission [Unknown]

NARRATIVE: CASE EVENT DATE: 20211001
